FAERS Safety Report 6045806-0 (Version None)
Quarter: 2009Q1

REPORT INFORMATION
  Report Type: 
  Country: None (occurrence: None)
  Receive Date: 20090121
  Receipt Date: 20080604
  Transmission Date: 20090719
  Serious: Yes (Hospitalization, Other)
  Sender: FDA-Public Use
  Company Number: JP-ELI_LILLY_AND_COMPANY-JP200712001982

PATIENT
  Sex: Male
  Weight: 74 kg

DRUGS (12)
  1. ALIMTA [Suspect]
     Indication: PLEURAL MESOTHELIOMA MALIGNANT
     Dosage: 750 MG, OTHER
     Route: 042
     Dates: start: 20071003, end: 20071114
  2. RANDA [Concomitant]
     Indication: PLEURAL MESOTHELIOMA MALIGNANT
     Dosage: 100 MG, OTHER
     Route: 042
     Dates: start: 20071003, end: 20071114
  3. FOLIAMIN [Concomitant]
     Dosage: 0.5 MG, DAILY (1/D)
     Route: 048
     Dates: start: 20070315, end: 20070531
  4. FOLIAMIN [Concomitant]
     Dosage: 0.5 MG, DAILY (1/D)
     Route: 048
     Dates: start: 20070626, end: 20070830
  5. PANVITAN [Concomitant]
     Dosage: 1 G, DAILY (1/D)
     Route: 048
     Dates: start: 20070831, end: 20071220
  6. CYANOCOBALAMIN [Concomitant]
     Dosage: 1 MG, OTHER
     Route: 030
     Dates: start: 20070315, end: 20071122
  7. DECADRON /00016002/ [Concomitant]
     Indication: PROPHYLAXIS
     Dosage: 10 MG, DAILY (1/D)
     Route: 042
     Dates: start: 20070327, end: 20070913
  8. DECADRON /00016002/ [Concomitant]
     Dosage: 4 MG, DAILY (1/D)
     Route: 042
     Dates: start: 20070328, end: 20070915
  9. OPSO [Concomitant]
     Indication: CANCER PAIN
     Dosage: 5 MG, DAILY (1/D)
     Route: 048
     Dates: start: 20070322
  10. OXYCONTIN [Concomitant]
     Indication: CANCER PAIN
     Dosage: 10 MG, DAILY (1/D)
     Route: 048
     Dates: start: 20070417
  11. PREDNISOLONE [Concomitant]
     Indication: MALAISE
     Dosage: 5 MG, DAILY (1/D)
     Route: 048
     Dates: start: 20070920, end: 20071206
  12. PREDNISOLONE [Concomitant]
     Dosage: 10 MG, DAILY (1/D)
     Route: 048
     Dates: start: 20071207

REACTIONS (4)
  - ANAEMIA MACROCYTIC [None]
  - DISEASE PROGRESSION [None]
  - PERFORMANCE STATUS DECREASED [None]
  - RENAL IMPAIRMENT [None]
